FAERS Safety Report 21756579 (Version 1)
Quarter: 2022Q4

REPORT INFORMATION
  Report Type: Spontaneous
  Country: US (occurrence: None)
  Receive Date: 20221220
  Receipt Date: 20221220
  Transmission Date: 20230113
  Serious: No
  Sender: FDA-Public Use
  Company Number: 2022A382679

PATIENT
  Age: 82 Year
  Sex: Male

DRUGS (1)
  1. BYDUREON BCISE [Suspect]
     Active Substance: EXENATIDE
     Indication: Diabetes mellitus
     Route: 058

REACTIONS (5)
  - Injection site mass [Recovered/Resolved]
  - Incorrect dose administered by device [Not Recovered/Not Resolved]
  - Wrong technique in device usage process [Unknown]
  - Device malfunction [Unknown]
  - Device leakage [Unknown]

NARRATIVE: CASE EVENT DATE: 20210101
